FAERS Safety Report 17200265 (Version 2)
Quarter: 2024Q3

REPORT INFORMATION
  Report Type: Spontaneous
  Country: JO (occurrence: JO)
  Receive Date: 20191226
  Receipt Date: 20240920
  Transmission Date: 20241016
  Serious: Yes (Death, Other)
  Sender: ALKEM
  Company Number: None

PATIENT
  Age: 36 Year
  Sex: Female

DRUGS (7)
  1. MYCOPHENOLATE MOFETIL [Suspect]
     Active Substance: MYCOPHENOLATE MOFETIL
     Indication: Glomerulonephritis proliferative
     Dosage: 2 DOSAGE FORM, TID, (EVERY 8 HOUR), (MYFORTIC 360 MG)
     Route: 065
     Dates: start: 20140113, end: 20140208
  2. MYCOPHENOLATE MOFETIL [Suspect]
     Active Substance: MYCOPHENOLATE MOFETIL
     Dosage: 1000 MILLIGRAM, QID
     Route: 065
  3. CYCLOPHOSPHAMIDE [Suspect]
     Active Substance: CYCLOPHOSPHAMIDE
     Indication: Glomerulonephritis proliferative
     Dosage: 500 MILLIGRAM
     Route: 065
     Dates: start: 20131226, end: 20131229
  4. CYCLOPHOSPHAMIDE [Suspect]
     Active Substance: CYCLOPHOSPHAMIDE
     Dosage: 1000 MILLIGRAM, (EVERY 1 MONTH)
     Route: 042
  5. CYCLOPHOSPHAMIDE [Suspect]
     Active Substance: CYCLOPHOSPHAMIDE
     Dosage: 500 MILLIGRAM, (EVERY 2 WEEK)
     Route: 042
     Dates: end: 20131212
  6. METHYLPREDNISOLONE [Suspect]
     Active Substance: METHYLPREDNISOLONE
     Indication: Glomerulonephritis proliferative
     Dosage: 1000 MILLIGRAM, QD, (PULSE)
     Route: 065
     Dates: start: 20131226, end: 20131229
  7. RITUXIMAB [Suspect]
     Active Substance: RITUXIMAB
     Indication: Glomerulonephritis proliferative
     Dosage: 1000 MILLIGRAM
     Route: 065
     Dates: start: 20131226, end: 20131229

REACTIONS (4)
  - Renal failure [Unknown]
  - Pneumonia [Fatal]
  - Pyelonephritis [Unknown]
  - Diarrhoea [Recovered/Resolved]

NARRATIVE: CASE EVENT DATE: 20140203
